FAERS Safety Report 9365148 (Version 2)
Quarter: 2013Q3

REPORT INFORMATION
  Report Type: Spontaneous
  Country: US (occurrence: US)
  Receive Date: 20130624
  Receipt Date: 20130703
  Transmission Date: 20140515
  Serious: Yes (Hospitalization, Other)
  Sender: FDA-Public Use
  Company Number: US-OPTIMER-20130246

PATIENT
  Age: 39 Year
  Sex: Male

DRUGS (5)
  1. DIFICID [Suspect]
     Indication: CLOSTRIDIAL INFECTION
     Dosage: UNKNOWN
     Dates: start: 20130523, end: 20130603
  2. APRISO [Concomitant]
     Indication: DIARRHOEA
     Dosage: UNK
     Dates: start: 20130514, end: 20130524
  3. APRISO [Concomitant]
     Indication: COLITIS
     Dosage: UNK
     Dates: start: 20130531, end: 20130613
  4. APRISO [Concomitant]
     Indication: PROCTITIS
  5. FLAGYL [Concomitant]
     Dosage: UNK
     Route: 042
     Dates: start: 20130531, end: 20130610

REACTIONS (4)
  - Megacolon [Recovered/Resolved]
  - Diarrhoea [Unknown]
  - Drug ineffective [Unknown]
  - Off label use [Unknown]
